FAERS Safety Report 13395905 (Version 2)
Quarter: 2017Q2

REPORT INFORMATION
  Report Type: Spontaneous
  Country: US (occurrence: US)
  Receive Date: 20170403
  Receipt Date: 20170420
  Transmission Date: 20170830
  Serious: No
  Sender: FDA-Public Use
  Company Number: US-LUNDBECK-DKLU2028093

PATIENT
  Age: 60 Year
  Sex: Female

DRUGS (3)
  1. NORTHERA [Suspect]
     Active Substance: DROXIDOPA
     Indication: PRODUCT USED FOR UNKNOWN INDICATION
     Dosage: TITRATION SCHEDULE C (TITRATING)
     Route: 065
     Dates: start: 20170315
  2. NORTHERA [Suspect]
     Active Substance: DROXIDOPA
     Route: 065
     Dates: start: 20170320
  3. NORTHERA [Suspect]
     Active Substance: DROXIDOPA
     Dosage: TITRATION COMPLETE
     Route: 065

REACTIONS (7)
  - Dizziness [Unknown]
  - Dyspnoea [Unknown]
  - Malaise [Unknown]
  - Blood pressure fluctuation [Unknown]
  - Tremor [Unknown]
  - Chest pain [Unknown]
  - Gait disturbance [Unknown]

NARRATIVE: CASE EVENT DATE: 20170316
